FAERS Safety Report 9697436 (Version 2)
Quarter: 2014Q3

REPORT INFORMATION
  Report Type: Spontaneous
  Country: US (occurrence: US)
  Receive Date: 20131120
  Receipt Date: 20140717
  Transmission Date: 20150326
  Serious: Yes (Other)
  Sender: FDA-Public Use
  Company Number: US-BAYER-2013-138536

PATIENT
  Age: 37 Year
  Sex: Female
  Weight: 63.49 kg

DRUGS (15)
  1. YAZ [Suspect]
     Active Substance: DROSPIRENONE\ETHINYL ESTRADIOL
     Indication: PREMENSTRUAL SYNDROME
     Dosage: UNK
     Dates: start: 20101004, end: 20120416
  2. LEVOTHYROXINE [Concomitant]
     Active Substance: LEVOTHYROXINE
     Indication: HYPOTHYROIDISM
  3. OMEGA 3 [FISH OIL] [Concomitant]
     Indication: SKIN DISORDER
     Dosage: DAILY
     Dates: start: 2010, end: 2013
  4. VITAMIN D [Concomitant]
     Active Substance: CHOLECALCIFEROL
     Indication: IMMUNE SYSTEM DISORDER
     Dosage: UNK
     Dates: start: 2007, end: 2013
  5. LEVOTHYROXINE [Concomitant]
     Active Substance: LEVOTHYROXINE
     Indication: THYROID DISORDER
     Dosage: 25 MCG DAILY, 0.025 MG, 25 MCG ONE QD
     Route: 048
  6. OMEPRAZOLE. [Concomitant]
     Active Substance: OMEPRAZOLE
     Indication: GASTROOESOPHAGEAL REFLUX DISEASE
     Dosage: 20 MG, TID
     Dates: start: 20120123, end: 20120319
  7. MOMETASONE FUROATE. [Concomitant]
     Active Substance: MOMETASONE FUROATE
     Indication: RHINITIS ALLERGIC
     Dosage: 2 SPRAYS EACH BID
     Route: 045
     Dates: start: 20110504, end: 20120123
  8. FLUCONAZOLE. [Concomitant]
     Active Substance: FLUCONAZOLE
     Indication: VAGINAL INFECTION
     Dosage: 150 MG, UNK
     Route: 048
     Dates: start: 20120123, end: 20120207
  9. TERCONAZOLE. [Concomitant]
     Active Substance: TERCONAZOLE
     Indication: VAGINAL INFECTION
     Dosage: 80 MG, ONE SUPPOSITORY PER 3 NIGHTS
     Route: 067
     Dates: start: 20120208
  10. TERCONAZOLE. [Concomitant]
     Active Substance: TERCONAZOLE
     Indication: PRURITUS
  11. TERCONAZOLE. [Concomitant]
     Active Substance: TERCONAZOLE
     Indication: VULVOVAGINITIS
  12. ALLEGRA [Concomitant]
     Active Substance: FEXOFENADINE HYDROCHLORIDE
     Indication: HYPERSENSITIVITY
     Dosage: 90 MG, PRN
     Dates: start: 2000, end: 2013
  13. VITAMIN C [Concomitant]
     Active Substance: ASCORBIC ACID
     Indication: IMMUNE SYSTEM DISORDER
     Dosage: 500 MG, DAILY
     Dates: start: 2003, end: 2013
  14. ALPRAZOLAM. [Concomitant]
     Active Substance: ALPRAZOLAM
     Dosage: 0.25 MG, UNK
     Dates: start: 20120123
  15. XANAX [Concomitant]
     Active Substance: ALPRAZOLAM
     Indication: ANXIETY
     Dosage: 0.25 MG, 1 TAB
     Route: 048
     Dates: start: 20101026, end: 20120207

REACTIONS (6)
  - Fear of disease [None]
  - Injury [None]
  - Thrombophlebitis superficial [None]
  - Pain [None]
  - Thrombosis [None]
  - Thrombosis [None]

NARRATIVE: CASE EVENT DATE: 201010
